FAERS Safety Report 7040240-9 (Version None)
Quarter: 2010Q4

REPORT INFORMATION
  Report Type: 
  Country: None (occurrence: None)
  Receive Date: 20101012
  Receipt Date: 20101004
  Transmission Date: 20110411
  Serious: Yes (Other)
  Sender: FDA-Public Use
  Company Number: US-AMGEN-KDL444342

PATIENT
  Sex: Male
  Weight: 58.6 kg

DRUGS (9)
  1. PROCRIT [Suspect]
     Indication: ANAEMIA
     Route: 058
     Dates: start: 20060101
  2. ASPIRIN [Concomitant]
     Route: 048
     Dates: start: 19950101
  3. TOPROL-XL [Concomitant]
     Route: 048
     Dates: start: 19950101
  4. SYNTHROID [Concomitant]
     Route: 048
     Dates: start: 20020101
  5. SINGULAIR [Concomitant]
     Dates: start: 20030101
  6. TUSSIN DM [Concomitant]
     Dates: start: 20030101
  7. BENADRYL [Concomitant]
     Dates: start: 20030101
  8. HYDROCODONE [Concomitant]
     Dates: start: 19990101
  9. DUONEB [Concomitant]
     Route: 055
     Dates: start: 20030101

REACTIONS (6)
  - DRY SKIN [None]
  - FUNGAL INFECTION [None]
  - HAEMOPTYSIS [None]
  - HYPERTENSION [None]
  - SKIN DISORDER [None]
  - VARICES OESOPHAGEAL [None]
